FAERS Safety Report 5337242-7 (Version None)
Quarter: 2007Q2

REPORT INFORMATION
  Report Type: 
  Country: None (occurrence: None)
  Receive Date: 20070529
  Receipt Date: 20070526
  Transmission Date: 20071010
  Serious: Yes (Hospitalization, Other)
  Sender: FDA-Public Use
  Company Number: A0653087A

PATIENT
  Age: 65 Year
  Sex: Male
  Weight: 97 kg

DRUGS (3)
  1. AVANDIA [Suspect]
     Route: 065
     Dates: start: 20020101
  2. DIABETES MEDICATION [Concomitant]
  3. HEART MEDICATION [Concomitant]

REACTIONS (1)
  - INFARCTION [None]
